FAERS Safety Report 10079891 (Version 1)
Quarter: 2014Q2

REPORT INFORMATION
  Report Type: Spontaneous
  Country: NO (occurrence: NO)
  Receive Date: 20140415
  Receipt Date: 20140415
  Transmission Date: 20141212
  Serious: Yes (Hospitalization)
  Sender: FDA-Public Use
  Company Number: NO-PFIZER INC-2014100372

PATIENT
  Age: 75 Year
  Sex: Male

DRUGS (4)
  1. CLINDAMYCIN HCL [Suspect]
     Indication: WOUND INFECTION
     Dosage: 150 MG, 4X/DAY
     Route: 048
     Dates: start: 20140310, end: 20140319
  2. MAREVAN [Concomitant]
  3. ZOPICLONE [Concomitant]
     Dosage: AS NEEDED
  4. LIORESAL [Concomitant]

REACTIONS (1)
  - Acute generalised exanthematous pustulosis [Recovering/Resolving]
